FAERS Safety Report 9531770 (Version 1)
Quarter: 2013Q3

REPORT INFORMATION
  Report Type: Spontaneous
  Country: US (occurrence: None)
  Receive Date: 20130917
  Receipt Date: 20130917
  Transmission Date: 20140515
  Serious: Yes (Life-Threatening, Hospitalization)
  Sender: FDA-Public Use
  Company Number: None

PATIENT
  Age: 44 Year
  Sex: Female
  Weight: 107 kg

DRUGS (18)
  1. CEFAZOLIN [Suspect]
     Indication: ARTHRITIS BACTERIAL
     Route: 042
     Dates: start: 20110428, end: 20110530
  2. ACETAMINOPHEN [Concomitant]
  3. BENZTROPINE [Concomitant]
  4. CALCIUM [Concomitant]
  5. CHLORPROMAZINE [Concomitant]
  6. EFAVIRENZ [Concomitant]
  7. EMTRICITABINE + TENOFOVIR [Concomitant]
  8. HYDROMORPHONE [Concomitant]
  9. LANSOPRAZOLE [Concomitant]
  10. METOPROLOL [Concomitant]
  11. NYSTATIN [Concomitant]
  12. ONDANSETRON [Concomitant]
  13. RISPERIDONE [Concomitant]
  14. SERTRALINE [Concomitant]
  15. SEVELAMER [Concomitant]
  16. VALPROIC ACID [Concomitant]
  17. ZIDOVUDINE [Concomitant]
  18. ZINC OXIDE [Concomitant]

REACTIONS (1)
  - Pancytopenia [None]
